FAERS Safety Report 22245388 (Version 2)
Quarter: 2023Q2

REPORT INFORMATION
  Report Type: Spontaneous
  Country: US (occurrence: US)
  Receive Date: 20230424
  Receipt Date: 20230505
  Transmission Date: 20230722
  Serious: Yes (Hospitalization, Other)
  Sender: FDA-Public Use
  Company Number: US-drreddys-LIT/USA/23/0163981

PATIENT
  Age: 6 Decade

DRUGS (4)
  1. TACROLIMUS [Suspect]
     Active Substance: TACROLIMUS
     Indication: Immunosuppressant drug therapy
  2. METHYLPREDNISOLONE [Suspect]
     Active Substance: METHYLPREDNISOLONE
     Indication: Delayed graft function
  3. PREDNISONE [Suspect]
     Active Substance: PREDNISONE
     Indication: Immunosuppressant drug therapy
  4. MYCOPHENOLIC ACID [Suspect]
     Active Substance: MYCOPHENOLIC ACID
     Indication: Immunosuppressant drug therapy

REACTIONS (8)
  - COVID-19 [Recovering/Resolving]
  - Organising pneumonia [Recovering/Resolving]
  - Bronchopulmonary aspergillosis [Recovering/Resolving]
  - Cytopenia [Recovering/Resolving]
  - Toxicity to various agents [Unknown]
  - Delayed graft function [Recovering/Resolving]
  - Cytomegalovirus viraemia [Recovering/Resolving]
  - Bacterial infection [Recovering/Resolving]
